FAERS Safety Report 9982587 (Version 1)
Quarter: 2014Q1

REPORT INFORMATION
  Report Type: Report from Study
  Country: US (occurrence: US)
  Receive Date: 20140307
  Receipt Date: 20140307
  Transmission Date: 20141002
  Serious: No
  Sender: FDA-Public Use
  Company Number: US-ABBVIE-13P-163-1180807-00

PATIENT
  Age: 61 Year
  Sex: Male

DRUGS (6)
  1. HUMIRA [Suspect]
     Indication: ANKYLOSING SPONDYLITIS
     Dates: start: 201309
  2. CELEBREX [Concomitant]
     Indication: SPONDYLITIS
  3. LISINOPRIL [Concomitant]
     Indication: BLOOD PRESSURE
  4. DILTIAZEM [Concomitant]
     Indication: CARDIAC DISORDER
  5. FLEXERIL [Concomitant]
     Indication: INSOMNIA
     Dosage: AT BEDTIME
  6. TRAMADOL [Concomitant]
     Indication: PAIN
     Dosage: UP TO SIX DAILY

REACTIONS (1)
  - Drug dose omission [Not Recovered/Not Resolved]
